FAERS Safety Report 5596936-9 (Version None)
Quarter: 2007Q4

REPORT INFORMATION
  Report Type: 
  Country: None (occurrence: None)
  Receive Date: 20071220
  Receipt Date: 20070924
  Transmission Date: 20080405
  Serious: Yes (Other)
  Sender: FDA-Public Use
  Company Number: A03200705751

PATIENT
  Sex: Female

DRUGS (2)
  1. AMBIEN [Suspect]
     Dosage: ORAL
     Route: 048
     Dates: start: 20070601
  2. LYRICA [Suspect]
     Dosage: TO BE TAKEN IN THE MORNING -
     Dates: start: 20070701

REACTIONS (1)
  - LOSS OF CONSCIOUSNESS [None]
